FAERS Safety Report 9156266 (Version 1)
Quarter: 2013Q1

REPORT INFORMATION
  Report Type: Spontaneous
  Country: US (occurrence: US)
  Receive Date: 20130118
  Receipt Date: 20130118
  Transmission Date: 20140127
  Serious: Yes (Hospitalization)
  Sender: FDA-Public Use
  Company Number: US-RB-008782-10

PATIENT
  Age: 1 Day
  Sex: Male

DRUGS (4)
  1. SUBOXONE [Suspect]
     Indication: PRODUCT USED FOR UNKNOWN INDICATION
     Route: 064
     Dates: start: 20090314, end: 20090429
  2. SUBUTEX [Suspect]
     Indication: PRODUCT USED FOR UNKNOWN INDICATION
     Route: 064
     Dates: start: 20090430, end: 20090531
  3. SUBUTEX [Suspect]
     Route: 064
     Dates: start: 20090601, end: 20091218
  4. ZOLOFT [Suspect]
     Indication: DEPRESSION
     Route: 064
     Dates: start: 20090314, end: 20091218

REACTIONS (2)
  - Fever neonatal [Recovered/Resolved]
  - Foetal exposure during pregnancy [Recovered/Resolved]
